FAERS Safety Report 9109253 (Version 1)
Quarter: 2013Q1

REPORT INFORMATION
  Report Type: Report from Study
  Country: GB (occurrence: JP)
  Receive Date: 20130222
  Receipt Date: 20130222
  Transmission Date: 20140127
  Serious: Yes (Death, Life-Threatening, Hospitalization)
  Sender: FDA-Public Use
  Company Number: GB-MYLANLABS-2013S1003145

PATIENT
  Age: 53 Year
  Sex: Male
  Weight: 74 kg

DRUGS (8)
  1. METHOTREXATE MYLAN [Suspect]
     Indication: RHEUMATOID ARTHRITIS
     Route: 048
     Dates: start: 200708
  2. METHOTREXATE MYLAN [Suspect]
     Indication: RHEUMATOID ARTHRITIS
  3. BLINDED STUDY MEDICATION [Suspect]
     Indication: RHEUMATOID ARTHRITIS
     Route: 048
     Dates: start: 20080516, end: 20110519
  4. LOXOPROFEN SODIUM [Concomitant]
     Indication: PRODUCT USED FOR UNKNOWN INDICATION
     Dates: start: 20101125
  5. FOLIAMIN [Concomitant]
     Indication: PRODUCT USED FOR UNKNOWN INDICATION
     Dates: start: 200708
  6. TEPRENONE [Concomitant]
     Indication: PRODUCT USED FOR UNKNOWN INDICATION
     Dates: start: 2002
  7. PREDNISOLONE [Concomitant]
     Indication: PRODUCT USED FOR UNKNOWN INDICATION
     Dates: start: 20080803
  8. TAKEPRON [Concomitant]
     Indication: PRODUCT USED FOR UNKNOWN INDICATION
     Dates: start: 20080515

REACTIONS (2)
  - Small cell lung cancer metastatic [Fatal]
  - Glomerulonephritis membranous [Not Recovered/Not Resolved]
